FAERS Safety Report 5712092-8 (Version None)
Quarter: 2008Q2

REPORT INFORMATION
  Report Type: 
  Country: None (occurrence: None)
  Receive Date: 20080418
  Receipt Date: 20080407
  Transmission Date: 20081010
  Serious: Yes (Death)
  Sender: FDA-Public Use
  Company Number: 2008-02292

PATIENT
  Age: 24 Year
  Sex: Male

DRUGS (3)
  1. HYDROCODONE BITARTRATE/ACETAMINOPHEN 10/325 MG (WATSON LABORATORIES) ( [Suspect]
     Indication: PAIN
     Dosage: 125 TABLETS/2 WEEKS, ORAL
     Route: 048
     Dates: start: 20030124, end: 20050805
  2. CARISOPRODOL [Suspect]
     Indication: MUSCLE SPASMS
     Dosage: 75 TABLETS/2 WEEKS, ORAL
     Route: 048
     Dates: start: 20030124, end: 20050805
  3. XANAX [Suspect]
     Indication: STRESS
     Dosage: 75 00 TABLETS/2 WEEKS, ORAL
     Route: 048
     Dates: start: 20030124, end: 20050805

REACTIONS (3)
  - DRUG TOXICITY [None]
  - MULTIPLE DRUG OVERDOSE INTENTIONAL [None]
  - POTENTIATING DRUG INTERACTION [None]
